FAERS Safety Report 21160728 (Version 7)
Quarter: 2022Q3

REPORT INFORMATION
  Report Type: Spontaneous
  Country: US (occurrence: US)
  Receive Date: 20220802
  Receipt Date: 20220917
  Transmission Date: 20221027
  Serious: Yes (Hospitalization, Other)
  Sender: FDA-Public Use
  Company Number: US-UNITED THERAPEUTICS-UNT-2022-016624

PATIENT
  Sex: Male
  Weight: 89.796 kg

DRUGS (7)
  1. TYVASO [Suspect]
     Active Substance: TREPROSTINIL
     Indication: Pulmonary arterial hypertension
     Dosage: UNK
     Dates: start: 20190206
  2. TYVASO [Suspect]
     Active Substance: TREPROSTINIL
     Dosage: 108 ?G, QID
  3. TYVASO [Suspect]
     Active Substance: TREPROSTINIL
     Dosage: 108 ?G, QID
  4. TYVASO [Suspect]
     Active Substance: TREPROSTINIL
     Dosage: 90-108 ?G, QID
  5. ADEMPAS [Suspect]
     Active Substance: RIOCIGUAT
     Indication: Product used for unknown indication
     Dosage: UNK
     Route: 065
  6. ADEMPAS [Suspect]
     Active Substance: RIOCIGUAT
     Dosage: 2.5 MG, TID
     Route: 065
     Dates: start: 202207, end: 2022
  7. ADEMPAS [Suspect]
     Active Substance: RIOCIGUAT
     Dosage: 2 MG, TID
     Route: 065
     Dates: start: 2022

REACTIONS (18)
  - Deafness unilateral [Not Recovered/Not Resolved]
  - Dyspnoea [Unknown]
  - Fluid retention [Unknown]
  - Hypotension [Unknown]
  - Asthenia [Unknown]
  - Oedema peripheral [Not Recovered/Not Resolved]
  - Infection [Unknown]
  - Productive cough [Unknown]
  - Ear discomfort [Unknown]
  - Joint swelling [Unknown]
  - Middle ear effusion [Not Recovered/Not Resolved]
  - Abdominal discomfort [Unknown]
  - Decreased appetite [Unknown]
  - Hot flush [Unknown]
  - Heart rate increased [Unknown]
  - Oxygen consumption increased [Unknown]
  - Respiratory tract congestion [Unknown]
  - Off label use [Unknown]

NARRATIVE: CASE EVENT DATE: 20220101
